FAERS Safety Report 14008219 (Version 6)
Quarter: 2017Q4

REPORT INFORMATION
  Report Type: Report from Study
  Country: US (occurrence: US)
  Receive Date: 20170925
  Receipt Date: 20171124
  Transmission Date: 20180321
  Serious: Yes (Death, Hospitalization)
  Sender: FDA-Public Use
  Company Number: PHHO2017US013303

PATIENT
  Age: 74 Year
  Sex: Female

DRUGS (5)
  1. INC424A [Suspect]
     Active Substance: RUXOLITINIB
     Dosage: 5 MG, BID
     Route: 048
     Dates: start: 20170916, end: 20170919
  2. INC424A [Suspect]
     Active Substance: RUXOLITINIB
     Indication: OVARIAN EPITHELIAL CANCER
     Dosage: 10 MG BID (TOTAL THIS COURSE 520 MG)
     Route: 048
     Dates: start: 20170825, end: 20170914
  3. INC424A [Suspect]
     Active Substance: RUXOLITINIB
     Dosage: 10 MG, ONCE/SINGLE
     Route: 048
     Dates: start: 20170915, end: 20170915
  4. PACLITAXEL. [Suspect]
     Active Substance: PACLITAXEL
     Indication: OVARIAN EPITHELIAL CANCER
     Dosage: 70 MG/M2 (DAYS 1,8,15)(TOTAL THIS COURSE 114 MG)
     Route: 042
     Dates: start: 20170825, end: 20170916
  5. CARBOPLATIN. [Suspect]
     Active Substance: CARBOPLATIN
     Indication: OVARIAN EPITHELIAL CANCER
     Dosage: AUC 6 (DAY 1) (TOTAL THIS COURSE 485 MG)
     Route: 042
     Dates: start: 20170825, end: 20170916

REACTIONS (5)
  - Disease progression [Fatal]
  - Nausea [Not Recovered/Not Resolved]
  - Fatigue [Not Recovered/Not Resolved]
  - Vomiting [Not Recovered/Not Resolved]
  - Decreased appetite [Not Recovered/Not Resolved]

NARRATIVE: CASE EVENT DATE: 20170912
